FAERS Safety Report 4490028-8 (Version None)
Quarter: 2004Q4

REPORT INFORMATION
  Report Type: 
  Country: None (occurrence: None)
  Receive Date: 20041021
  Receipt Date: 20041008
  Transmission Date: 20050328
  Serious: Yes (Hospitalization)
  Sender: FDA-Public Use
  Company Number: WAES 0211USA01959

PATIENT
  Age: 70 Year
  Sex: Male

DRUGS (4)
  1. COZAAR [Suspect]
     Indication: HYPERTENSION
     Dosage: 50 MG/DAILY
     Route: 048
     Dates: start: 20011201
  2. BASEN [Concomitant]
  3. GLIMICRON [Concomitant]
  4. LIPOVAS [Concomitant]

REACTIONS (6)
  - BLOOD GLUCOSE INCREASED [None]
  - CONDITION AGGRAVATED [None]
  - DIABETES MELLITUS [None]
  - HYPERKALAEMIA [None]
  - HYPERLIPIDAEMIA [None]
  - TREATMENT NONCOMPLIANCE [None]
